FAERS Safety Report 23480645 (Version 1)
Quarter: 2024Q1

REPORT INFORMATION
  Report Type: Report from Study
  Country: SA (occurrence: SA)
  Receive Date: 20240205
  Receipt Date: 20240205
  Transmission Date: 20240409
  Serious: Yes (Hospitalization, Other)
  Sender: FDA-Public Use
  Company Number: SA-VKT-000441

PATIENT
  Age: 5 Year
  Sex: Female
  Weight: 6 kg

DRUGS (2)
  1. LEVETIRACETAM [Suspect]
     Active Substance: LEVETIRACETAM
     Indication: Seizure
     Route: 065
  2. VALPROIC ACID [Suspect]
     Active Substance: VALPROIC ACID
     Indication: Seizure
     Route: 065

REACTIONS (5)
  - Epileptic encephalopathy [Unknown]
  - Dysphagia [Unknown]
  - Change in seizure presentation [Unknown]
  - Hippocampal sclerosis [Unknown]
  - White matter lesion [Unknown]
